FAERS Safety Report 21858721 (Version 1)
Quarter: 2023Q1

REPORT INFORMATION
  Report Type: Report from Study
  Country: CA (occurrence: CA)
  Receive Date: 20230113
  Receipt Date: 20230113
  Transmission Date: 20230418
  Serious: Yes (Other)
  Sender: FDA-Public Use
  Company Number: CA-JNJFOC-20220753938

PATIENT
  Age: 49 Year
  Sex: Female
  Weight: 136 kg

DRUGS (1)
  1. REMICADE [Suspect]
     Active Substance: INFLIXIMAB
     Indication: Crohn^s disease
     Dosage: EXPIRY DATE: 28-FEB-2025
     Route: 041
     Dates: start: 20131017

REACTIONS (4)
  - Vaginal operation [Not Recovered/Not Resolved]
  - Hysterectomy [Not Recovered/Not Resolved]
  - Developmental delay [Unknown]
  - Off label use [Unknown]

NARRATIVE: CASE EVENT DATE: 20220815
